FAERS Safety Report 10353223 (Version 1)
Quarter: 2014Q3

REPORT INFORMATION
  Report Type: Spontaneous
  Country: US (occurrence: US)
  Receive Date: 20140730
  Receipt Date: 20140730
  Transmission Date: 20150326
  Serious: Yes (Other)
  Sender: FDA-Public Use
  Company Number: US-GILEAD-2014-0110689

PATIENT
  Sex: Female

DRUGS (1)
  1. LETAIRIS [Suspect]
     Active Substance: AMBRISENTAN
     Indication: PRODUCT USED FOR UNKNOWN INDICATION
     Dosage: 5 MG, UNK
     Route: 065
     Dates: start: 20091217

REACTIONS (8)
  - Sleep disorder [Unknown]
  - Malaise [Unknown]
  - Escherichia infection [Unknown]
  - Pulmonary mass [Unknown]
  - Blood pressure decreased [Unknown]
  - Candida infection [Unknown]
  - Aphagia [Unknown]
  - Weight decreased [Unknown]
